FAERS Safety Report 9280720 (Version 2)
Quarter: 2013Q3

REPORT INFORMATION
  Report Type: Report from Study
  Country: CA (occurrence: CA)
  Receive Date: 20130509
  Receipt Date: 20130717
  Transmission Date: 20140515
  Serious: Yes (Hospitalization, Other)
  Sender: FDA-Public Use
  Company Number: CA-UCBSA-084794

PATIENT
  Age: 42 Year
  Sex: Female

DRUGS (6)
  1. CIMZIA [Suspect]
     Indication: RHEUMATOID ARTHRITIS
     Route: 058
     Dates: start: 20121217, end: 20130408
  2. NAPROXEN [Concomitant]
     Dates: start: 2004
  3. SYMBICORT [Concomitant]
     Dates: start: 20121122
  4. ELAVIL [Concomitant]
     Dates: start: 20130207
  5. METHOTREXATE [Concomitant]
     Dates: end: 2013
  6. TYLENOL [Concomitant]
     Indication: PAIN

REACTIONS (2)
  - Appendicitis [Recovered/Resolved]
  - Pyelonephritis [Unknown]
